FAERS Safety Report 9922662 (Version 2)
Quarter: 2014Q2

REPORT INFORMATION
  Report Type: Spontaneous
  Country: GB (occurrence: GB)
  Receive Date: 20140225
  Receipt Date: 20140425
  Transmission Date: 20141212
  Serious: Yes (Other)
  Sender: FDA-Public Use
  Company Number: GB-UCBSA-112991

PATIENT
  Age: 28 Year
  Sex: Male

DRUGS (6)
  1. KEPPRA [Suspect]
     Indication: EPILEPSY
     Dosage: 2X500MG BID
     Route: 048
     Dates: start: 20140325
  2. KEPPRA [Suspect]
     Indication: EPILEPSY
     Dosage: 3 X 500MG BID
     Route: 048
     Dates: start: 20140217, end: 20140325
  3. KEPPRA [Suspect]
     Indication: EPILEPSY
     Dosage: 2X500MG
     Route: 048
  4. LAMOTRIGINE [Concomitant]
  5. CLOBAZAM [Concomitant]
     Dosage: 2 X 10MG
  6. CITALOPRAM [Concomitant]

REACTIONS (3)
  - Tourette^s disorder [Recovering/Resolving]
  - Epilepsy [Not Recovered/Not Resolved]
  - Grunting [Not Recovered/Not Resolved]
